FAERS Safety Report 4724989-6 (Version None)
Quarter: 2005Q3

REPORT INFORMATION
  Report Type: 
  Country: None (occurrence: None)
  Receive Date: 20050722
  Receipt Date: 20050708
  Transmission Date: 20060218
  Serious: Yes (Other)
  Sender: FDA-Public Use
  Company Number: 8011077

PATIENT
  Age: 36 Year
  Sex: Male

DRUGS (6)
  1. KEPPRA [Suspect]
     Indication: EPILEPSY
     Dosage: 250 MG 2/D PO
     Route: 048
     Dates: start: 20050101, end: 20050401
  2. PAROXETINE [Suspect]
     Dosage: 1 DF ONCE PO
     Route: 048
  3. VALPROATE SODIUM [Concomitant]
  4. CHLORPROMAZINE HCL [Concomitant]
  5. LAMOTRIGINE [Concomitant]
  6. CLONAZEPAM [Concomitant]

REACTIONS (3)
  - CONDITION AGGRAVATED [None]
  - PORPHYRIA [None]
  - WRONG DRUG ADMINISTERED [None]
